FAERS Safety Report 10371385 (Version 1)
Quarter: 2014Q1

REPORT INFORMATION
  Report Type: Spontaneous
  Country: US (occurrence: None)
  Receive Date: 20140306
  Receipt Date: 20140306
  Transmission Date: 20141002
  Serious: Yes (Hospitalization)
  Sender: FDA-Public Use
  Company Number: 163-21880-13080542

PATIENT
  Age: 64 Year
  Sex: Male

DRUGS (8)
  1. REVLIMID (LENALIDOMIDE) (15 MILLIGRAM, CAPSULES) [Suspect]
     Indication: PLASMA CELL MYELOMA
     Route: 048
     Dates: start: 201008
  2. PROTONIX (PANTOPRAZOLE) [Concomitant]
  3. ACYCLOVIR (ACICLOVIR) (ACICLOVIR) [Concomitant]
  4. ASPIRIN (ACETYLSALICYLIC ACID) [Concomitant]
  5. FOLIC ACID [Concomitant]
  6. MEPRON (ATOVAQUONE) [Concomitant]
  7. MULTIVITAMINS [Concomitant]
  8. VITAMIN D3 (COLECALCIFEROL) [Concomitant]

REACTIONS (1)
  - Infection [None]
